FAERS Safety Report 7244821-9 (Version None)
Quarter: 2011Q1

REPORT INFORMATION
  Report Type: 
  Country: None (occurrence: None)
  Receive Date: 20110126
  Receipt Date: 20110114
  Transmission Date: 20110831
  Serious: Yes (Other)
  Sender: FDA-Public Use
  Company Number: US-PFIZER INC-2011011749

PATIENT
  Sex: Male

DRUGS (3)
  1. LIPITOR [Suspect]
     Indication: HYPERCHOLESTEROLAEMIA
     Dosage: UNK
     Dates: start: 20000101
  2. SYNTHROID [Suspect]
     Dosage: 125 UG, 2 TABS 3 DAYS A WEEK AND 1 TAB ON THE OTHER 4 DAYS OF THE WEEK,
  3. PRILOSEC [Suspect]
     Dosage: 20 MG, DAILY

REACTIONS (10)
  - SEASONAL ALLERGY [None]
  - ELECTROCARDIOGRAM ST-T CHANGE [None]
  - TACHYCARDIA [None]
  - ASTHENIA [None]
  - URTICARIA [None]
  - HYPERHIDROSIS [None]
  - FLUSHING [None]
  - DIZZINESS [None]
  - SINUS DISORDER [None]
  - DYSPNOEA [None]
